FAERS Safety Report 8423728-5 (Version None)
Quarter: 2012Q2

REPORT INFORMATION
  Report Type: 
  Country: None (occurrence: None)
  Receive Date: 20120608
  Receipt Date: 20110811
  Transmission Date: 20120825
  Serious: No
  Sender: FDA-Public Use
  Company Number: US-ASTRAZENECA-2011SE48874

PATIENT
  Age: 55 Year
  Sex: Female

DRUGS (1)
  1. ATACAND [Suspect]
     Indication: PROPHYLAXIS
     Route: 048

REACTIONS (4)
  - DIZZINESS [None]
  - OFF LABEL USE [None]
  - HYPOTENSION [None]
  - TYPE 1 DIABETES MELLITUS [None]
